FAERS Safety Report 19783845 (Version 1)
Quarter: 2021Q3

REPORT INFORMATION
  Report Type: Spontaneous
  Country: US (occurrence: US)
  Receive Date: 20210902
  Receipt Date: 20210902
  Transmission Date: 20211014
  Serious: No
  Sender: FDA-Public Use
  Company Number: None

PATIENT

DRUGS (1)
  1. DESVENLAFAXINE ER [Suspect]
     Active Substance: DESVENLAFAXINE
     Indication: DEPRESSION
     Dosage: ?          QUANTITY:30 TABLET(S);?
     Route: 048

REACTIONS (6)
  - Crying [None]
  - Fatigue [None]
  - Anger [None]
  - Product substitution issue [None]
  - Irritability [None]
  - Feeling of despair [None]

NARRATIVE: CASE EVENT DATE: 20210719
